FAERS Safety Report 23944641 (Version 1)
Quarter: 2024Q2

REPORT INFORMATION
  Report Type: Other
  Country: AU (occurrence: AU)
  Receive Date: 20240606
  Receipt Date: 20240606
  Transmission Date: 20240716
  Serious: Yes (Other)
  Sender: FDA-Public Use
  Company Number: AU-ASTELLAS-2024US016104

PATIENT
  Age: 76 Year
  Sex: Male

DRUGS (1)
  1. MIRABEGRON [Suspect]
     Active Substance: MIRABEGRON
     Indication: Product used for unknown indication
     Dosage: UNK UNK, UNKNOWN FREQ.
     Route: 065

REACTIONS (6)
  - Loss of consciousness [Recovered/Resolved]
  - Nausea [Unknown]
  - Skin discolouration [Unknown]
  - Fall [Unknown]
  - Chest injury [Unknown]
  - Joint injury [Unknown]

NARRATIVE: CASE EVENT DATE: 20240307
